FAERS Safety Report 14843143 (Version 8)
Quarter: 2019Q1

REPORT INFORMATION
  Report Type: Spontaneous
  Country: US (occurrence: US)
  Receive Date: 20180503
  Receipt Date: 20190201
  Transmission Date: 20190417
  Serious: Yes (Congenital Anomaly, Other)
  Sender: FDA-Public Use
  Company Number: PHEH2018US016391

PATIENT
  Sex: Female

DRUGS (1)
  1. ZOFRAN ODT [Suspect]
     Active Substance: ONDANSETRON HYDROCHLORIDE
     Indication: FOETAL EXPOSURE DURING PREGNANCY
     Dosage: MOTHER^S DOSE: 4 MG, BID, PRN
     Route: 064

REACTIONS (57)
  - Otitis media chronic [Unknown]
  - Arrhythmia [Unknown]
  - Learning disorder [Unknown]
  - Tonsillar hypertrophy [Unknown]
  - Upper respiratory tract infection [Unknown]
  - Dysuria [Unknown]
  - Left ventricular dilatation [Unknown]
  - Adenoiditis [Unknown]
  - Croup infectious [Unknown]
  - Velopharyngeal incompetence [Unknown]
  - Malpositioned teeth [Unknown]
  - Ventricular septal defect [Unknown]
  - Right aortic arch [Unknown]
  - Cleft lip [Unknown]
  - Varices oesophageal [Unknown]
  - Cognitive disorder [Unknown]
  - Skin laceration [Unknown]
  - Enuresis [Unknown]
  - Haematuria [Unknown]
  - Micrognathia [Unknown]
  - Foetal exposure during pregnancy [Unknown]
  - Sinusitis [Unknown]
  - Pain [Unknown]
  - Weight decreased [Unknown]
  - Urinary tract infection [Unknown]
  - Atrial septal defect [Unknown]
  - Pulmonary valve stenosis [Unknown]
  - Supraventricular extrasystoles [Unknown]
  - Speech sound disorder [Unknown]
  - Cardiac murmur [Unknown]
  - Ear infection [Unknown]
  - Adenoidal hypertrophy [Unknown]
  - Anxiety [Unknown]
  - Rhinitis [Unknown]
  - Cough [Unknown]
  - Headache [Unknown]
  - Left-to-right cardiac shunt [Unknown]
  - Cleft palate [Unknown]
  - Pneumonia streptococcal [Unknown]
  - Jaundice neonatal [Unknown]
  - Bronchitis [Unknown]
  - Cryptitis [Unknown]
  - Bronchial hyperreactivity [Unknown]
  - Otitis media acute [Unknown]
  - Pharyngitis [Unknown]
  - Acute sinusitis [Unknown]
  - Middle ear effusion [Unknown]
  - Attention deficit/hyperactivity disorder [Unknown]
  - Otorrhoea [Unknown]
  - Mitral valve incompetence [Unknown]
  - Chronic tonsillitis [Unknown]
  - Palatal disorder [Unknown]
  - Supernumerary teeth [Unknown]
  - Emotional distress [Unknown]
  - Pyrexia [Unknown]
  - Rhinitis allergic [Unknown]
  - Ear haemorrhage [Unknown]
